FAERS Safety Report 5217188-5 (Version None)
Quarter: 2007Q1

REPORT INFORMATION
  Report Type: 
  Country: None (occurrence: None)
  Receive Date: 20070123
  Receipt Date: 20070123
  Transmission Date: 20070707
  Serious: Yes (Hospitalization)
  Sender: FDA-Public Use
  Company Number: None

PATIENT
  Sex: Male
  Weight: 52.6173 kg

DRUGS (8)
  1. CLOPIDOGREL [Suspect]
     Indication: CEREBROVASCULAR ACCIDENT
     Dosage: 75MG DAILY PO
     Route: 048
     Dates: start: 20010802, end: 20061231
  2. ZITHROMYCIN [Concomitant]
  3. CIPROFLOXACIN [Concomitant]
  4. CLOPIDOGREL [Concomitant]
  5. TAMSULOSIN HCL [Concomitant]
  6. FINASTERIDE [Concomitant]
  7. OMEPRAZOLE [Concomitant]
  8. RISPERDAL [Concomitant]

REACTIONS (4)
  - CONFUSIONAL STATE [None]
  - FALL [None]
  - INCOHERENT [None]
  - SUBDURAL HAEMATOMA [None]
